FAERS Safety Report 21690759 (Version 2)
Quarter: 2024Q2

REPORT INFORMATION
  Report Type: Spontaneous
  Country: SE (occurrence: SE)
  Receive Date: 20221206
  Receipt Date: 20240607
  Transmission Date: 20240716
  Serious: Yes (Hospitalization, Disabling)
  Sender: FDA-Public Use
  Company Number: None

PATIENT
  Age: 32 Year
  Sex: Female

DRUGS (1)
  1. AIMOVIG [Suspect]
     Active Substance: ERENUMAB-AOOE
     Indication: Migraine
     Dosage: 140 MG, Q4W
     Route: 030
     Dates: start: 20220413

REACTIONS (1)
  - Eye infarction [Recovered/Resolved with Sequelae]

NARRATIVE: CASE EVENT DATE: 20221114
